FAERS Safety Report 8556050-7 (Version None)
Quarter: 2012Q3

REPORT INFORMATION
  Report Type: 
  Country: None (occurrence: None)
  Receive Date: 20120801
  Receipt Date: 20120721
  Transmission Date: 20120928
  Serious: Yes (Other)
  Sender: FDA-Public Use
  Company Number: JP-ACCORD-012295

PATIENT
  Age: 80 Year
  Sex: Female

DRUGS (5)
  1. DONEPEZIL HCL [Suspect]
     Dosage: FOR MORE THAN 3 YEARS.
  2. ATORVASTATIN CALCIUM [Concomitant]
     Dosage: FOR MORE THAN 3 YEARS.
  3. ALFACALCIDOL [Concomitant]
     Dosage: 0.5. FOR MORE THAN 3 YEARS.
  4. RISEDRONATE SODIUM [Concomitant]
     Dosage: FOR MORE THAN 3 YEARS.
  5. BENIDIPINE HYDROCHLORIDE [Interacting]
     Dosage: FOR MORE THAN 3 YEARS.
     Dates: end: 20100901

REACTIONS (2)
  - ELECTROCARDIOGRAM QT PROLONGED [None]
  - DRUG INTERACTION [None]
